FAERS Safety Report 9888773 (Version 2)
Quarter: 2014Q1

REPORT INFORMATION
  Report Type: Not Available
  Country: DE (occurrence: DE)
  Receive Date: 20140211
  Receipt Date: 20140214
  Transmission Date: 20141002
  Serious: Yes (Hospitalization)
  Sender: FDA-Public Use
  Company Number: DE-ONYX-2014-0311

PATIENT
  Age: 51 Year
  Sex: Male
  Weight: 75 kg

DRUGS (6)
  1. KYPROLIS [Suspect]
     Indication: PLASMA CELL MYELOMA
     Route: 042
     Dates: start: 20131219, end: 20140103
  2. METOPROLOL [Concomitant]
     Indication: HYPERTENSION
     Route: 048
  3. RANITIC [Concomitant]
     Indication: GASTRITIS
     Route: 048
  4. VORICONAZOLE [Concomitant]
     Indication: ASPERGILLUS INFECTION
     Route: 048
     Dates: start: 20130821
  5. ACICLOVIR [Concomitant]
     Indication: ANTIVIRAL PROPHYLAXIS
     Route: 048
  6. AMLODIPINE [Concomitant]
     Indication: HYPERTENSION
     Route: 048

REACTIONS (1)
  - Cardiomyopathy [Recovered/Resolved]
